FAERS Safety Report 11605906 (Version 2)
Quarter: 2015Q4

REPORT INFORMATION
  Report Type: Spontaneous
  Country: US (occurrence: US)
  Receive Date: 20151007
  Receipt Date: 20151110
  Transmission Date: 20160304
  Serious: Yes (Hospitalization, Other)
  Sender: FDA-Public Use
  Company Number: US-GLAXOSMITHKLINE-US2015GSK139603

PATIENT
  Sex: Female

DRUGS (4)
  1. VERAMYST [Suspect]
     Active Substance: FLUTICASONE FUROATE
     Indication: CHRONIC SINUSITIS
     Dosage: 27.5 UG, UNK
     Route: 065
  2. VERAMYST [Suspect]
     Active Substance: FLUTICASONE FUROATE
     Indication: MULTIPLE ALLERGIES
  3. VENTOLIN HFA [Suspect]
     Active Substance: ALBUTEROL SULFATE
     Indication: PRODUCT USED FOR UNKNOWN INDICATION
     Dosage: 90 UG, UNK
     Route: 055
     Dates: start: 2005
  4. VALTREX [Suspect]
     Active Substance: VALACYCLOVIR HYDROCHLORIDE
     Indication: HERPES VIRUS INFECTION
     Dosage: 500 MG, UNK
     Route: 065

REACTIONS (3)
  - Diverticulitis [Unknown]
  - Gastrointestinal disorder [Unknown]
  - Malaise [Unknown]
